FAERS Safety Report 25192626 (Version 1)
Quarter: 2025Q2

REPORT INFORMATION
  Report Type: Spontaneous
  Country: US (occurrence: US)
  Receive Date: 20250414
  Receipt Date: 20250414
  Transmission Date: 20250717
  Serious: Yes (Other)
  Sender: CSL BEHRING
  Company Number: US-BEH-2025201775

PATIENT
  Age: 70 Year
  Sex: Female
  Weight: 63.9 kg

DRUGS (1)
  1. MIRCERA [Suspect]
     Active Substance: METHOXY POLYETHYLENE GLYCOL-EPOETIN BETA
     Indication: Nephrogenic anaemia
     Dosage: 200 ?G, QOW
     Route: 042
     Dates: start: 20250131, end: 20250329

REACTIONS (5)
  - Drug hypersensitivity [Unknown]
  - Dyspnoea [Unknown]
  - Nausea [Unknown]
  - Vomiting [Unknown]
  - Blood pressure decreased [Unknown]

NARRATIVE: CASE EVENT DATE: 20250329
